FAERS Safety Report 5222505-6 (Version None)
Quarter: 2007Q1

REPORT INFORMATION
  Report Type: 
  Country: None (occurrence: None)
  Receive Date: 20070124
  Receipt Date: 20070112
  Transmission Date: 20070707
  Serious: Yes (Hospitalization)
  Sender: FDA-Public Use
  Company Number: 2006BI017378

PATIENT
  Age: 44 Year
  Sex: Female
  Weight: 52.1637 kg

DRUGS (5)
  1. AVONEX [Suspect]
     Indication: MULTIPLE SCLEROSIS
     Dosage: 30 UG; QW; IM
     Route: 030
     Dates: start: 20060701
  2. DETROL [Concomitant]
  3. LOPRIMIDE [Concomitant]
  4. LOESTRIN [Concomitant]
  5. REMERON [Concomitant]

REACTIONS (2)
  - JOINT SWELLING [None]
  - PNEUMONIA [None]
